FAERS Safety Report 4275068-6 (Version None)
Quarter: 2004Q1

REPORT INFORMATION
  Report Type: 
  Country: None (occurrence: None)
  Receive Date: 20040116
  Receipt Date: 20040109
  Transmission Date: 20041129
  Serious: Yes (Hospitalization, Other)
  Sender: FDA-Public Use
  Company Number: CIP04000041

PATIENT
  Age: 23 Year
  Sex: Male

DRUGS (5)
  1. ASACOL [Suspect]
     Indication: COLITIS ULCERATIVE
     Dosage: SEE IMAGE ORAL
     Route: 048
     Dates: start: 20030101, end: 20030101
  2. ASACOL [Suspect]
     Indication: COLITIS ULCERATIVE
     Dosage: SEE IMAGE ORAL
     Route: 048
     Dates: start: 20030101
  3. MESALAMINE [Suspect]
     Indication: COLITIS ULCERATIVE
     Dosage: RECTAL
     Route: 054
     Dates: start: 20030829
  4. AZATHIOPRINE [Concomitant]
  5. PREDNISOLONE [Concomitant]

REACTIONS (3)
  - CEREBRAL VENOUS THROMBOSIS [None]
  - FAECES DISCOLOURED [None]
  - LABORATORY TEST ABNORMAL [None]
